FAERS Safety Report 5595567-4 (Version None)
Quarter: 2008Q1

REPORT INFORMATION
  Report Type: 
  Country: None (occurrence: None)
  Receive Date: 20080118
  Receipt Date: 20080110
  Transmission Date: 20080703
  Serious: Yes (Hospitalization)
  Sender: FDA-Public Use
  Company Number: PHBS2008DK00717

PATIENT
  Age: 83 Year
  Sex: Female

DRUGS (1)
  1. EXELON [Suspect]
     Dosage: 1.5 MG, BID
     Route: 065
     Dates: start: 20071218, end: 20080108

REACTIONS (5)
  - ALANINE AMINOTRANSFERASE INCREASED [None]
  - BLOOD LACTATE DEHYDROGENASE INCREASED [None]
  - DEHYDRATION [None]
  - NAUSEA [None]
  - VOMITING [None]
